FAERS Safety Report 12542004 (Version 8)
Quarter: 2019Q2

REPORT INFORMATION
  Report Type: Spontaneous
  Country: US (occurrence: US)
  Receive Date: 20160708
  Receipt Date: 20190528
  Transmission Date: 20190711
  Serious: No
  Sender: FDA-Public Use
  Company Number: US-ACTELION-A-US2016-138206

PATIENT
  Sex: Female
  Weight: 91.16 kg

DRUGS (6)
  1. PREDNISONE. [Concomitant]
     Active Substance: PREDNISONE
  2. OPSUMIT [Suspect]
     Active Substance: MACITENTAN
     Indication: PULMONARY ARTERIAL HYPERTENSION
     Dosage: 10 MG, QD
     Route: 048
     Dates: start: 20160620
  3. AMLODIPINE [Concomitant]
     Active Substance: AMLODIPINE BESYLATE
  4. FLORASTOR [Concomitant]
     Active Substance: SACCHAROMYCES CEREVISIAE
  5. CEPHALEXIN. [Concomitant]
     Active Substance: CEPHALEXIN
  6. SEMAGLUTIDE [Concomitant]
     Active Substance: SEMAGLUTIDE

REACTIONS (12)
  - Fatigue [Unknown]
  - Lethargy [Unknown]
  - Hyperhidrosis [Unknown]
  - Asthenia [Unknown]
  - Arthritis [Unknown]
  - Chills [Unknown]
  - Feeling abnormal [Unknown]
  - Diabetes mellitus [Unknown]
  - Weight increased [Unknown]
  - Vision blurred [Unknown]
  - Urinary tract infection [Unknown]
  - Decreased appetite [Unknown]
